FAERS Safety Report 10553103 (Version 2)
Quarter: 2014Q4

REPORT INFORMATION
  Report Type: Spontaneous
  Country: DK (occurrence: DK)
  Receive Date: 20141030
  Receipt Date: 20141106
  Transmission Date: 20150529
  Serious: Yes (Death, Hospitalization)
  Sender: FDA-Public Use
  Company Number: PHHY2014DK137927

PATIENT
  Age: 27 Year
  Sex: Male
  Weight: 125 kg

DRUGS (2)
  1. QUETIAPINE [Suspect]
     Active Substance: QUETIAPINE
     Indication: ANXIETY
     Dosage: 400 MG, QD
     Route: 065
  2. INSULIN [Concomitant]
     Active Substance: INSULIN NOS
     Indication: TYPE 2 DIABETES MELLITUS
     Route: 065

REACTIONS (28)
  - Abdominal tenderness [Fatal]
  - Shock [Unknown]
  - General physical health deterioration [Unknown]
  - Ketoacidosis [Fatal]
  - Acetonaemia [Fatal]
  - Diabetic ketoacidosis [Fatal]
  - Hyperglycaemia [Fatal]
  - Pyrexia [Unknown]
  - Impaired gastric emptying [Fatal]
  - Pallor [Unknown]
  - Depressed level of consciousness [Unknown]
  - Pancreatitis acute [Fatal]
  - Gastrointestinal oedema [Fatal]
  - Abdominal pain upper [Fatal]
  - Diabetes mellitus [Fatal]
  - Hyperhidrosis [Unknown]
  - Hypertriglyceridaemia [Fatal]
  - Metabolic acidosis [Unknown]
  - Hypovolaemia [Unknown]
  - Lactic acidosis [Unknown]
  - Multi-organ failure [Fatal]
  - Abdominal pain [Fatal]
  - Vomiting [Fatal]
  - Delirium [Unknown]
  - Hypoxia [Unknown]
  - Oliguria [Unknown]
  - Acute respiratory distress syndrome [Unknown]
  - Hyperpyrexia [Unknown]
